FAERS Safety Report 17723761 (Version 1)
Quarter: 2020Q2

REPORT INFORMATION
  Report Type: Spontaneous
  Country: US (occurrence: US)
  Receive Date: 20200429
  Receipt Date: 20200429
  Transmission Date: 20200714
  Serious: Yes (Hospitalization)
  Sender: FDA-Public Use
  Company Number: US-FRESENIUS KABI-FK202004286

PATIENT

DRUGS (3)
  1. ROPIVACAINE (MANUFACTURER UNKNOWN) [Suspect]
     Active Substance: ROPIVACAINE
     Indication: BIOPSY LUNG
     Dosage: 50 PERCENT MIXTURE OF ROPIVACAINE (7.5 MG/ML) AND BUPIVACAINE (2.5 MG/ML)
  2. BUPIVACAINE (MANUFACTURER UNKNOWN) [Suspect]
     Active Substance: BUPIVACAINE
     Indication: BIOPSY LUNG
     Dosage: 50 PERCENT MIXTURE OF ROPIVACAINE (7.5 MG/ML) AND BUPIVACAINE (2.5 MG/ML)
  3. PARACETAMOL (MANUFACTURER UNKNOWN) [Suspect]
     Active Substance: ACETAMINOPHEN
     Indication: BIOPSY LUNG
     Route: 042

REACTIONS (1)
  - Condition aggravated [Unknown]
